FAERS Safety Report 17914350 (Version 5)
Quarter: 2020Q3

REPORT INFORMATION
  Report Type: Spontaneous
  Country: US (occurrence: US)
  Receive Date: 20200619
  Receipt Date: 20200810
  Transmission Date: 20201103
  Serious: Yes (Other)
  Sender: FDA-Public Use
  Company Number: US-PFIZER INC-2019334678

PATIENT
  Age: 80 Year
  Sex: Female
  Weight: 95.25 kg

DRUGS (3)
  1. IBRANCE [Suspect]
     Active Substance: PALBOCICLIB
     Indication: BREAST CANCER FEMALE
     Dosage: 125 MG
  2. IBRANCE [Suspect]
     Active Substance: PALBOCICLIB
     Indication: BREAST CANCER FEMALE
     Dosage: 125 MG, CYCLIC (ONE TABLET DAILY BY MOUTH FOR 3 WEEKS ON AND WEEK OFF)
     Route: 048
  3. LETROZOLE. [Concomitant]
     Active Substance: LETROZOLE
     Dosage: UNK, DAILY (EVERY DAY)

REACTIONS (11)
  - Neuropathy peripheral [Unknown]
  - Product taste abnormal [Unknown]
  - Joint swelling [Unknown]
  - Hypertension [Unknown]
  - Anxiety [Unknown]
  - Product packaging difficult to open [Unknown]
  - Poor quality product administered [Unknown]
  - Weight increased [Unknown]
  - Peripheral swelling [Unknown]
  - Neoplasm progression [Unknown]
  - Packaging design issue [Unknown]
